FAERS Safety Report 9013821 (Version 1)
Quarter: 2013Q1

REPORT INFORMATION
  Report Type: Spontaneous
  Country: US (occurrence: None)
  Receive Date: 20130108
  Receipt Date: 20130108
  Transmission Date: 20140127
  Serious: No
  Sender: FDA-Public Use
  Company Number: None

PATIENT
  Sex: Female
  Weight: 75.75 kg

DRUGS (2)
  1. HYDROCODONE + ACETAMINOPHEN [Suspect]
     Indication: FIBROMYALGIA
     Route: 048
     Dates: start: 20040101, end: 20040102
  2. HYDROCODONE + ACETAMINOPHEN [Suspect]
     Indication: PAIN
     Route: 048
     Dates: start: 20040101, end: 20040102

REACTIONS (2)
  - Product substitution issue [None]
  - Rash generalised [None]
